FAERS Safety Report 8344487-0 (Version None)
Quarter: 2012Q2

REPORT INFORMATION
  Report Type: 
  Country: None (occurrence: None)
  Receive Date: 20120508
  Receipt Date: 20120427
  Transmission Date: 20120825
  Serious: Yes (Other)
  Sender: FDA-Public Use
  Company Number: US-JNJFOC-20120206139

PATIENT
  Sex: Female
  Weight: 50.8 kg

DRUGS (9)
  1. DEXILANT [Concomitant]
     Indication: GASTROOESOPHAGEAL REFLUX DISEASE
     Route: 048
     Dates: start: 20080101
  2. ENTOCORT EC [Concomitant]
     Indication: CROHN'S DISEASE
     Route: 048
  3. QUESTRAN [Concomitant]
     Indication: DIARRHOEA
     Route: 065
  4. IMODIUM [Concomitant]
     Indication: CROHN'S DISEASE
     Dosage: AS NEEDED
     Route: 048
  5. REMICADE [Suspect]
     Indication: CROHN'S DISEASE
     Dosage: 3 INFUSIONS
     Route: 042
     Dates: start: 20120124
  6. CLONAZEPAM [Concomitant]
     Indication: DEPRESSION
     Route: 048
     Dates: start: 20120101
  7. PROZAC [Concomitant]
     Indication: DEPRESSION
     Route: 048
     Dates: start: 20070101
  8. CARAFATE [Concomitant]
     Indication: GASTROOESOPHAGEAL REFLUX DISEASE
     Dosage: AS NEEDED
     Route: 048
  9. XANAX [Concomitant]
     Indication: DEPRESSION
     Dosage: AS NEEDED
     Route: 048

REACTIONS (13)
  - SKIN LESION [None]
  - EYE SWELLING [None]
  - DIARRHOEA [None]
  - FURUNCLE [None]
  - MALAISE [None]
  - CONTUSION [None]
  - ORAL HERPES [None]
  - DEPRESSION [None]
  - ABDOMINAL PAIN UPPER [None]
  - PAIN IN EXTREMITY [None]
  - HYPERTENSION [None]
  - MUSCLE SPASMS [None]
  - MUSCLE TWITCHING [None]
